FAERS Safety Report 9683969 (Version 2)
Quarter: 2013Q4

REPORT INFORMATION
  Report Type: Spontaneous
  Country: JP (occurrence: JP)
  Receive Date: 20131112
  Receipt Date: 20131205
  Transmission Date: 20140711
  Serious: Yes (Other)
  Sender: FDA-Public Use
  Company Number: JP-PFIZER INC-2013321489

PATIENT
  Age: 77 Year
  Sex: Female

DRUGS (2)
  1. CELECOX [Suspect]
     Indication: ARTHRALGIA
     Dosage: 400 MG, DAILY
     Route: 048
     Dates: start: 201310
  2. VOLTAREN [Concomitant]
     Indication: ARTHRALGIA
     Dosage: TWICE A DAY

REACTIONS (1)
  - Prinzmetal angina [Recovered/Resolved]
